FAERS Safety Report 21378114 (Version 4)
Quarter: 2022Q4

REPORT INFORMATION
  Report Type: Spontaneous
  Country: AU (occurrence: AU)
  Receive Date: 20220926
  Receipt Date: 20221103
  Transmission Date: 20230113
  Serious: Yes (Hospitalization, Other)
  Sender: FDA-Public Use
  Company Number: AU-PFIZER INC-202201170751

PATIENT
  Sex: Female

DRUGS (1)
  1. ENBREL [Suspect]
     Active Substance: ETANERCEPT
     Indication: Ankylosing spondylitis
     Dosage: UNK
     Route: 065

REACTIONS (13)
  - Ankylosing spondylitis [Unknown]
  - Idiopathic intracranial hypertension [Unknown]
  - Cellulitis [Unknown]
  - Fall [Unknown]
  - Head injury [Unknown]
  - Injection site pain [Unknown]
  - Throat irritation [Not Recovered/Not Resolved]
  - Oedema peripheral [Unknown]
  - Confusional state [Unknown]
  - Intentional dose omission [Unknown]
  - Device difficult to use [Unknown]
  - Incorrect dose administered by device [Unknown]
  - Device leakage [Unknown]
